FAERS Safety Report 5126584-6 (Version None)
Quarter: 2006Q4

REPORT INFORMATION
  Report Type: 
  Country: None (occurrence: None)
  Receive Date: 20061012
  Receipt Date: 20061012
  Transmission Date: 20070319
  Serious: Yes (Other)
  Sender: FDA-Public Use
  Company Number: None

PATIENT
  Sex: Male
  Weight: 50 kg

DRUGS (1)
  1. OMNISCAN [Suspect]
     Indication: BACK PAIN
     Dosage: 10 CC
     Dates: start: 20060907

REACTIONS (1)
  - NEPHROGENIC FIBROSING DERMOPATHY [None]
